FAERS Safety Report 14804583 (Version 1)
Quarter: 2018Q2

REPORT INFORMATION
  Report Type: Spontaneous
  Country: US (occurrence: US)
  Receive Date: 20180425
  Receipt Date: 20180425
  Transmission Date: 20180711
  Serious: Yes (Hospitalization, Other)
  Sender: FDA-Public Use
  Company Number: US-PERRIGO-18US004088

PATIENT
  Sex: Female

DRUGS (1)
  1. ENTOCORT EC [Suspect]
     Active Substance: BUDESONIDE
     Indication: COLITIS
     Dosage: UNKNOWN, UNKNOWN
     Route: 048
     Dates: start: 2014, end: 2014

REACTIONS (6)
  - Proctalgia [Not Recovered/Not Resolved]
  - Rectal spasm [Not Recovered/Not Resolved]
  - Off label use [Recovered/Resolved]
  - Suicidal ideation [Not Recovered/Not Resolved]
  - Therapeutic response unexpected [Recovered/Resolved]
  - Anorectal discomfort [Not Recovered/Not Resolved]

NARRATIVE: CASE EVENT DATE: 2014
